FAERS Safety Report 7641229-9 (Version None)
Quarter: 2011Q3

REPORT INFORMATION
  Report Type: 
  Country: None (occurrence: None)
  Receive Date: 20110728
  Receipt Date: 20110727
  Transmission Date: 20111222
  Serious: Yes (Death)
  Sender: FDA-Public Use
  Company Number: PHHY2011CA66086

PATIENT
  Sex: Female

DRUGS (4)
  1. CLOZAPINE [Suspect]
     Indication: PSYCHOTIC DISORDER
     Dosage: 200 MG QAM + 600 MG IN EVENING
     Route: 048
     Dates: start: 20110311
  2. LOXAPINE HCL [Concomitant]
     Dosage: 10 MG, UNK
  3. SERTRALINE HYDROCHLORIDE [Concomitant]
     Dosage: 150 MG, QAM
     Route: 048
  4. LORAZEPAM [Concomitant]
     Dosage: 1 MG, UNK

REACTIONS (1)
  - CARDIAC ARREST [None]
